FAERS Safety Report 16897246 (Version 1)
Quarter: 2019Q4

REPORT INFORMATION
  Report Type: Spontaneous
  Country: FR (occurrence: FR)
  Receive Date: 20191009
  Receipt Date: 20191009
  Transmission Date: 20200122
  Serious: Yes (Other)
  Sender: FDA-Public Use
  Company Number: FR-VIIV HEALTHCARE LIMITED-FR2019179250

PATIENT
  Age: 48 Year
  Sex: Male
  Weight: 106 kg

DRUGS (1)
  1. TIVICAY [Suspect]
     Active Substance: DOLUTEGRAVIR SODIUM
     Indication: ACQUIRED IMMUNODEFICIENCY SYNDROME
     Dosage: 50 MG, QD
     Route: 048
     Dates: start: 20180926

REACTIONS (3)
  - Diabetes mellitus [Not Recovered/Not Resolved]
  - Weight increased [Not Recovered/Not Resolved]
  - Hypertriglyceridaemia [Not Recovered/Not Resolved]

NARRATIVE: CASE EVENT DATE: 20180926
